FAERS Safety Report 9397725 (Version 3)
Quarter: 2013Q4

REPORT INFORMATION
  Report Type: Spontaneous
  Country: CA (occurrence: CA)
  Receive Date: 20130712
  Receipt Date: 20131007
  Transmission Date: 20140711
  Serious: Yes (Other)
  Sender: FDA-Public Use
  Company Number: CA-ASTELLAS-2013US006313

PATIENT
  Age: 65 Year
  Sex: Male
  Weight: 100 kg

DRUGS (7)
  1. MYRBETRIQ [Suspect]
     Indication: HYPERTONIC BLADDER
     Dosage: 25 MG, UID/QD
     Route: 048
     Dates: start: 20130605, end: 20130624
  2. VESICARE [Suspect]
     Indication: HYPERTONIC BLADDER
     Dosage: 10 MG, UID/QD
     Route: 048
     Dates: start: 2012
  3. PREDNISONE [Concomitant]
     Indication: PRODUCT USED FOR UNKNOWN INDICATION
     Dosage: 10 MG, UID/QD
     Route: 048
  4. SOPACELAZIDE [Concomitant]
     Indication: PRODUCT USED FOR UNKNOWN INDICATION
     Dosage: 2000 MG, UID/QD
     Route: 048
  5. ISOSORBIDE [Concomitant]
     Indication: CARDIAC DISORDER
     Dosage: 180 MG, UID/QD
     Route: 048
  6. COVERCIL [Concomitant]
     Indication: CARDIAC DISORDER
     Dosage: 4 MG, UID/QD
     Route: 048
  7. BISOPROLOL [Concomitant]
     Indication: CARDIAC DISORDER
     Dosage: 5 MG, UID/QD
     Route: 048

REACTIONS (5)
  - Fluid retention [Unknown]
  - Dysuria [Recovering/Resolving]
  - Pain in extremity [Recovering/Resolving]
  - Local swelling [Recovered/Resolved]
  - Dry mouth [Unknown]
